FAERS Safety Report 5665503-0 (Version None)
Quarter: 2008Q1

REPORT INFORMATION
  Report Type: 
  Country: None (occurrence: None)
  Receive Date: 20080314
  Receipt Date: 20071205
  Transmission Date: 20080703
  Serious: No
  Sender: FDA-Public Use
  Company Number: US-ABBOTT-07P-163-0427956-00

PATIENT
  Sex: Male
  Weight: 84.898 kg

DRUGS (9)
  1. HUMIRA [Suspect]
     Indication: PSORIASIS
     Route: 058
     Dates: start: 20071115
  2. PREDNISONE TAB [Suspect]
     Indication: PSORIASIS
     Route: 048
     Dates: start: 20060101, end: 20070920
  3. METOPROLOL SUCCINATE [Concomitant]
     Indication: HYPERTENSION
     Route: 048
     Dates: start: 20061101
  4. HYDROCHLOROTHIAZIDE [Concomitant]
     Indication: HYPERTENSION
     Route: 048
     Dates: start: 20031201
  5. ESOMEPRAZOLE MAGNESIUM [Concomitant]
     Indication: GASTROINTESTINAL DISORDER
     Route: 048
     Dates: start: 20061001
  6. TRAZODONE HCL [Concomitant]
     Indication: INSOMNIA
     Route: 048
     Dates: start: 20061101
  7. APXION CREAM [Concomitant]
     Indication: PSORIASIS
     Route: 061
     Dates: start: 20070901
  8. CLOBETASOL PROPIONATE [Concomitant]
     Indication: PSORIASIS
     Route: 061
     Dates: start: 20070901
  9. TASARAC CREAM 1% [Concomitant]
     Indication: PSORIASIS
     Route: 061
     Dates: start: 20070801

REACTIONS (2)
  - INJECTION SITE SWELLING [None]
  - PSORIASIS [None]
